FAERS Safety Report 8395654-1 (Version None)
Quarter: 2012Q2

REPORT INFORMATION
  Report Type: 
  Country: None (occurrence: None)
  Receive Date: 20120530
  Receipt Date: 20120119
  Transmission Date: 20120825
  Serious: No
  Sender: FDA-Public Use
  Company Number: US-GLAXOSMITHKLINE-A0962229A

PATIENT
  Age: 53 Year
  Sex: Female

DRUGS (9)
  1. VENTOLIN [Suspect]
     Indication: ASTHMA
     Dosage: 2SPR AS REQUIRED
     Route: 055
     Dates: start: 20060101
  2. OMEPRAZOLE [Concomitant]
  3. SINGULAIR [Concomitant]
  4. ADVAIR DISKUS 100/50 [Concomitant]
  5. NEBULIZER [Concomitant]
  6. POTASSIUM CHLORIDE [Concomitant]
  7. BENADRYL [Concomitant]
  8. LASIX [Concomitant]
  9. NAPROXEN (ALEVE) [Concomitant]

REACTIONS (3)
  - DRUG ADMINISTRATION ERROR [None]
  - DYSPNOEA [None]
  - PRODUCT QUALITY ISSUE [None]
